FAERS Safety Report 14037194 (Version 4)
Quarter: 2018Q1

REPORT INFORMATION
  Report Type: Spontaneous
  Country: JP (occurrence: JP)
  Receive Date: 20171004
  Receipt Date: 20180314
  Transmission Date: 20180508
  Serious: Yes (Hospitalization, Other)
  Sender: FDA-Public Use
  Company Number: JP-BRISTOL-MYERS SQUIBB COMPANY-BMS-2017-087862

PATIENT
  Age: 76 Year
  Sex: Male
  Weight: 75.1 kg

DRUGS (1)
  1. OPDIVO [Suspect]
     Active Substance: NIVOLUMAB
     Indication: NON-SMALL CELL LUNG CANCER RECURRENT
     Dosage: UNK
     Route: 041
     Dates: start: 20161216, end: 20170120

REACTIONS (2)
  - Tenosynovitis [Recovering/Resolving]
  - Polyarthritis [Recovering/Resolving]

NARRATIVE: CASE EVENT DATE: 2017
